FAERS Safety Report 13576474 (Version 1)
Quarter: 2017Q2

REPORT INFORMATION
  Report Type: Spontaneous
  Country: PT (occurrence: PT)
  Receive Date: 20170524
  Receipt Date: 20170524
  Transmission Date: 20170830
  Serious: Yes (Disabling)
  Sender: FDA-Public Use
  Company Number: PHHY2017PT071779

PATIENT
  Age: 44 Year
  Sex: Female
  Weight: 55 kg

DRUGS (6)
  1. RELMUS [Suspect]
     Active Substance: THIOCOLCHICOSIDE
     Indication: PAIN
     Dosage: 4 MG, QD
     Route: 030
     Dates: start: 20170425, end: 20170425
  2. CIPRALEX [Concomitant]
     Active Substance: ESCITALOPRAM OXALATE
     Indication: DEPRESSION
     Dosage: 10 MG, QD
     Route: 048
     Dates: start: 20170404
  3. STILNOX [Concomitant]
     Active Substance: ZOLPIDEM TARTRATE
     Indication: INSOMNIA
     Dosage: 10 MG, QD
     Route: 048
     Dates: start: 2015
  4. VOLTAREN [Suspect]
     Active Substance: DICLOFENAC SODIUM
     Indication: PAIN
     Dosage: 75 MG, QD
     Route: 030
     Dates: start: 20170425, end: 20170425
  5. BUSCOPAN [Concomitant]
     Active Substance: BUTYLSCOPOLAMINE BROMIDE
     Indication: COLITIS
     Dosage: 10 MG, QD
     Route: 048
  6. ESOMEPRAZOL [Concomitant]
     Active Substance: ESOMEPRAZOLE
     Indication: ULCER
     Dosage: 20 MG, QD
     Route: 048
     Dates: start: 2016

REACTIONS (3)
  - Paraesthesia [Recovered/Resolved]
  - Gait disturbance [Recovered/Resolved]
  - Monoplegia [Recovered/Resolved]

NARRATIVE: CASE EVENT DATE: 20170425
